FAERS Safety Report 9585828 (Version 1)
Quarter: 2013Q4

REPORT INFORMATION
  Report Type: Spontaneous
  Country: US (occurrence: None)
  Receive Date: 20131001
  Receipt Date: 20131001
  Transmission Date: 20140711
  Serious: Yes (Other)
  Sender: FDA-Public Use
  Company Number: CO-OR-SA-2013-093

PATIENT
  Age: 5 Year
  Sex: Male

DRUGS (1)
  1. PREDNISOLONE [Suspect]
     Indication: NEPHROTIC SYNDROME
     Route: 048

REACTIONS (4)
  - Nephrotic syndrome [None]
  - Drug ineffective [None]
  - Type 1 diabetes mellitus [None]
  - Drug resistance [None]
